FAERS Safety Report 4344007-1 (Version None)
Quarter: 2004Q2

REPORT INFORMATION
  Report Type: 
  Country: None (occurrence: None)
  Receive Date: 20040419
  Receipt Date: 20040407
  Transmission Date: 20050107
  Serious: Yes (Other)
  Sender: FDA-Public Use
  Company Number: 200410195BYL

PATIENT
  Age: 85 Year
  Sex: Female
  Weight: 42 kg

DRUGS (7)
  1. ASPIRIN [Suspect]
     Indication: ANTIPLATELET THERAPY
     Dosage: 100 MG, QD, ORAL
     Route: 048
     Dates: start: 20031201, end: 20031217
  2. ASPIRIN [Suspect]
     Indication: CEREBROVASCULAR ACCIDENT PROPHYLAXIS
     Dosage: 100 MG, QD, ORAL
     Route: 048
     Dates: start: 20031201, end: 20031217
  3. RYTHMODAN R (DISOPYRAMIDE) [Suspect]
     Indication: ARRHYTHMIA PROPHYLAXIS
     Dosage: 150 MG, QD, ORAL
     Route: 048
     Dates: start: 20031201
  4. ZOLPIDEM TARTRATE [Suspect]
     Indication: INSOMNIA
     Dosage: 5 MG, QD, ORAL
     Route: 048
     Dates: start: 20031204
  5. VERAPAMIL HYDROCHLORIDE [Suspect]
     Indication: PALPITATIONS
     Dosage: SEE IMAGE
     Route: 048
     Dates: start: 20031201, end: 20031203
  6. VERAPAMIL HYDROCHLORIDE [Suspect]
     Indication: PALPITATIONS
     Dosage: SEE IMAGE
     Route: 048
     Dates: start: 20031204, end: 20031210
  7. VERAPAMIL HYDROCHLORIDE [Suspect]
     Indication: PALPITATIONS
     Dosage: SEE IMAGE
     Route: 048
     Dates: start: 20031211, end: 20031217

REACTIONS (2)
  - SLEEP DISORDER [None]
  - STEVENS-JOHNSON SYNDROME [None]
